FAERS Safety Report 24017225 (Version 3)
Quarter: 2024Q3

REPORT INFORMATION
  Report Type: Spontaneous
  Country: PL (occurrence: PL)
  Receive Date: 20240627
  Receipt Date: 20240713
  Transmission Date: 20241017
  Serious: Yes (Other)
  Sender: ABBVIE
  Company Number: PL-RICHTER-2024-GR-006383

PATIENT
  Sex: Female

DRUGS (1)
  1. LEVONORGESTREL [Suspect]
     Active Substance: LEVONORGESTREL
     Indication: Contraception
     Dosage: 52 MG, SINGLE AT AN INITIAL RELEASE RATE OF 20 MICROGRAMS PER 24 HOURS
     Route: 015
     Dates: start: 20190722

REACTIONS (5)
  - Abortion spontaneous [Unknown]
  - Maternal exposure during pregnancy [Unknown]
  - Drug ineffective [Recovered/Resolved]
  - Pregnancy with contraceptive device [Recovered/Resolved]
  - Foetal growth restriction [Unknown]

NARRATIVE: CASE EVENT DATE: 20240101
